FAERS Safety Report 9537811 (Version 4)
Quarter: 2014Q3

REPORT INFORMATION
  Report Type: Spontaneous
  Country: FR (occurrence: FR)
  Receive Date: 20130919
  Receipt Date: 20140828
  Transmission Date: 20150326
  Serious: Yes (Hospitalization, Other)
  Sender: FDA-Public Use
  Company Number: FR-BRISTOL-MYERS SQUIBB COMPANY-19350123

PATIENT
  Age: 80 Year
  Sex: Female

DRUGS (13)
  1. CORTANCYL [Suspect]
     Active Substance: PREDNISONE
     Route: 048
     Dates: start: 2011
  2. ANSATIPINE [Suspect]
     Active Substance: RIFABUTIN
     Indication: LUNG DISORDER
     Route: 048
     Dates: start: 20130124, end: 201306
  3. DIFFU-K [Concomitant]
     Active Substance: POTASSIUM CHLORIDE
  4. DOLIPRANE [Concomitant]
     Active Substance: ACETAMINOPHEN
  5. ETHAMBUTOL [Suspect]
     Active Substance: ETHAMBUTOL HYDROCHLORIDE
     Indication: LUNG DISORDER
     Route: 048
  6. IZILOX [Suspect]
     Active Substance: MOXIFLOXACIN HYDROCHLORIDE
     Indication: LUNG DISORDER
     Route: 048
     Dates: end: 20130715
  7. ORENCIA [Suspect]
     Active Substance: ABATACEPT
     Indication: RHEUMATOID ARTHRITIS
     Dosage: INTERRUPTED:30JAN2013,?28FEB13-28MAY13,CONTINUED,1 A MONTH
     Route: 042
     Dates: start: 20111205
  8. CHONDROSULF [Concomitant]
     Active Substance: CHONDROITIN SULFATE (CHICKEN)
  9. ZECLAR [Suspect]
     Active Substance: CLARITHROMYCIN
     Indication: LUNG DISORDER
     Route: 048
     Dates: start: 20130124, end: 20130822
  10. RENITEC [Suspect]
     Active Substance: ENALAPRIL MALEATE
     Route: 048
  11. SOTALEX [Concomitant]
     Active Substance: SOTALOL
  12. ACTONEL [Concomitant]
     Active Substance: RISEDRONATE SODIUM
  13. DIMETANE [Concomitant]
     Active Substance: BROMPHENIRAMINE MALEATE
     Dosage: ADULT SYRUP

REACTIONS (4)
  - Atypical mycobacterial pneumonia [Not Recovered/Not Resolved]
  - Corneal deposits [Not Recovered/Not Resolved]
  - Vision blurred [Not Recovered/Not Resolved]
  - Hepatitis [Recovering/Resolving]

NARRATIVE: CASE EVENT DATE: 201210
